FAERS Safety Report 4413010-5 (Version None)
Quarter: 2004Q3

REPORT INFORMATION
  Report Type: 
  Country: None (occurrence: None)
  Receive Date: 20040802
  Receipt Date: 20040511
  Transmission Date: 20050211
  Serious: No
  Sender: FDA-Public Use
  Company Number: US-GLAXOSMITHKLINE-A0510402A

PATIENT
  Age: 4 Month
  Sex: Female

DRUGS (2)
  1. ZANTAC [Suspect]
     Dosage: .3ML TWICE PER DAY
     Route: 048
     Dates: start: 20040309
  2. NO CONCURRENT MEDICATION [Concomitant]

REACTIONS (2)
  - ABDOMINAL DISCOMFORT [None]
  - SKIN IRRITATION [None]
